FAERS Safety Report 18663278 (Version 1)
Quarter: 2020Q4

REPORT INFORMATION
  Report Type: Spontaneous
  Country: JP (occurrence: JP)
  Receive Date: 20201224
  Receipt Date: 20201224
  Transmission Date: 20210114
  Serious: Yes (Other)
  Sender: FDA-Public Use
  Company Number: JP-LUPIN PHARMACEUTICALS INC.-2020-10797

PATIENT
  Age: 69 Year
  Sex: Male

DRUGS (7)
  1. POLYMYXIN B. [Suspect]
     Active Substance: POLYMYXIN B
     Indication: RESPIRATORY FAILURE
  2. FAVIPIRAVIR [Suspect]
     Active Substance: FAVIPIRAVIR
     Indication: COVID-19 PNEUMONIA
     Dosage: 1800 MILLIGRAM (DAY 1 OF HOSPITALISATION)
     Route: 065
  3. FAVIPIRAVIR [Suspect]
     Active Substance: FAVIPIRAVIR
     Dosage: 800 MILLIGRAM
     Route: 065
  4. METHYLPREDNISOLONE. [Suspect]
     Active Substance: METHYLPREDNISOLONE
     Indication: COVID-19 PNEUMONIA
     Dosage: 1 GRAM, QD
     Route: 065
  5. CEFTRIAXONE. [Suspect]
     Active Substance: CEFTRIAXONE
     Indication: COVID-19 PNEUMONIA
     Dosage: UNK
     Route: 065
  6. POLYMYXIN B. [Suspect]
     Active Substance: POLYMYXIN B
     Indication: COVID-19 PNEUMONIA
     Dosage: UNK (ON DAY 6 OF HOSPITALISATION)
     Route: 065
  7. POLYMYXIN B. [Suspect]
     Active Substance: POLYMYXIN B
     Indication: HYPERFERRITINAEMIA

REACTIONS (1)
  - Off label use [Unknown]
